FAERS Safety Report 25608272 (Version 3)
Quarter: 2025Q4

REPORT INFORMATION
  Report Type: Report from Study
  Country: US (occurrence: US)
  Receive Date: 20250725
  Receipt Date: 20251010
  Transmission Date: 20260118
  Serious: Yes (Hospitalization)
  Sender: ABBVIE
  Company Number: US-ABBVIE-6385761

PATIENT
  Age: 59 Year
  Sex: Male
  Weight: 110.68 kg

DRUGS (1)
  1. SKYRIZI [Suspect]
     Active Substance: RISANKIZUMAB-RZAA
     Indication: Colitis ulcerative
     Route: 058
     Dates: start: 20250711

REACTIONS (4)
  - Prostatomegaly [Unknown]
  - Proctalgia [Not Recovered/Not Resolved]
  - Pancreatic duct stenosis [Not Recovered/Not Resolved]
  - Urethral obstruction [Unknown]

NARRATIVE: CASE EVENT DATE: 20250701
